FAERS Safety Report 23000111 (Version 3)
Quarter: 2023Q4

REPORT INFORMATION
  Report Type: Report from Study
  Country: US (occurrence: US)
  Receive Date: 20230928
  Receipt Date: 20231026
  Transmission Date: 20240109
  Serious: No
  Sender: FDA-Public Use
  Company Number: US-002147023-NVSC2023US209619

PATIENT
  Sex: Female

DRUGS (2)
  1. KISQALI [Suspect]
     Active Substance: RIBOCICLIB
     Indication: Product used for unknown indication
     Dosage: UNK
     Route: 048
  2. KISQALI [Suspect]
     Active Substance: RIBOCICLIB
     Dosage: UNK
     Route: 047

REACTIONS (6)
  - Taste disorder [Unknown]
  - Nausea [Unknown]
  - Fatigue [Unknown]
  - Constipation [Unknown]
  - Hepatic enzyme increased [Unknown]
  - Incorrect route of product administration [Unknown]
